FAERS Safety Report 5607056-9 (Version None)
Quarter: 2008Q1

REPORT INFORMATION
  Report Type: 
  Country: None (occurrence: None)
  Receive Date: 20080129
  Receipt Date: 20080117
  Transmission Date: 20080703
  Serious: Yes (Other)
  Sender: FDA-Public Use
  Company Number: JP-PFIZER INC-2008006553

PATIENT
  Age: 80 Year
  Sex: Female

DRUGS (11)
  1. ALDACTONE [Suspect]
     Dosage: DAILY DOSE:25MG
     Route: 048
     Dates: start: 20080110, end: 20080117
  2. ALLOPURINOL [Concomitant]
     Route: 048
  3. PLAVIX [Concomitant]
     Route: 048
  4. ADALAT [Concomitant]
     Route: 048
  5. DIOVAN [Concomitant]
     Route: 048
  6. LASIX [Concomitant]
  7. PARIET [Concomitant]
     Route: 048
  8. SELBEX [Concomitant]
     Route: 048
  9. GASMOTIN [Concomitant]
     Route: 048
  10. CARDENALIN [Concomitant]
     Route: 048
  11. HALCION [Concomitant]
     Route: 048

REACTIONS (1)
  - PLATELET COUNT DECREASED [None]
